FAERS Safety Report 11492823 (Version 2)
Quarter: 2015Q3

REPORT INFORMATION
  Report Type: Spontaneous
  Country: US (occurrence: US)
  Receive Date: 20150911
  Receipt Date: 20150916
  Transmission Date: 20151125
  Serious: Yes (Hospitalization, Other)
  Sender: FDA-Public Use
  Company Number: US-ASTRAZENECA-2015SE86920

PATIENT
  Age: 73 Year
  Sex: Female
  Weight: 85.3 kg

DRUGS (13)
  1. MILK OF MAGNESIA [Concomitant]
     Active Substance: MAGNESIUM HYDROXIDE
     Indication: CONSTIPATION
     Route: 048
     Dates: start: 20150901
  2. PREDNISONE. [Concomitant]
     Active Substance: PREDNISONE
     Indication: PAIN IN EXTREMITY
     Dosage: 40MG, QD X 2 DAY, THEN 30MG DAY X 2 DAYS, THEN 20 MG DAY X 2 DAYS, THEN 10 MG DAY X 2 DAYS.
     Route: 048
     Dates: start: 20150903
  3. LISINOPRIL. [Suspect]
     Active Substance: LISINOPRIL
     Indication: HYPERTENSION
     Route: 048
     Dates: start: 20100803
  4. LYNPARZA [Suspect]
     Active Substance: OLAPARIB
     Indication: OVARIAN CANCER
     Route: 048
     Dates: start: 20150828
  5. WARFARIN [Concomitant]
     Active Substance: WARFARIN
     Indication: ATRIAL FIBRILLATION
     Route: 048
  6. LYNPARZA [Suspect]
     Active Substance: OLAPARIB
     Indication: OVARIAN CANCER
     Route: 048
     Dates: start: 20150828
  7. WARFARIN [Concomitant]
     Active Substance: WARFARIN
     Indication: ATRIAL FIBRILLATION
     Route: 048
  8. NORCO [Concomitant]
     Active Substance: ACETAMINOPHEN\HYDROCODONE BITARTRATE
     Indication: PAIN
     Dosage: AT NIGHT, EVERY 4-6 HOURS, AS NEEDED
     Route: 048
     Dates: start: 20150901
  9. VENTOLIN [Concomitant]
     Active Substance: ALBUTEROL SULFATE
     Indication: DYSPNOEA
     Route: 055
     Dates: start: 20150212
  10. FUROSEMIDE. [Concomitant]
     Active Substance: FUROSEMIDE
     Route: 048
     Dates: start: 20150901
  11. LEVOFLXACIN [Concomitant]
     Indication: INFECTION
     Route: 048
     Dates: start: 20150901
  12. POTASSIUM CHLORIDE EXTENDED RELEASE [Concomitant]
     Indication: HYPOKALAEMIA
     Route: 048
     Dates: start: 201312
  13. PRAMIPEXOLE. [Concomitant]
     Active Substance: PRAMIPEXOLE
     Indication: RESTLESS LEGS SYNDROME
     Route: 048
     Dates: start: 20110815

REACTIONS (10)
  - Erythema [Unknown]
  - Vomiting [Unknown]
  - Pyrexia [Unknown]
  - Blood creatinine increased [Unknown]
  - Pain in extremity [Not Recovered/Not Resolved]
  - Hyperkalaemia [Unknown]
  - Ovarian cancer recurrent [Unknown]
  - Colon cancer [Unknown]
  - Back pain [Unknown]
  - Nausea [Unknown]

NARRATIVE: CASE EVENT DATE: 2010
